FAERS Safety Report 4962119-6 (Version None)
Quarter: 2006Q2

REPORT INFORMATION
  Report Type: 
  Country: None (occurrence: None)
  Receive Date: 20060404
  Receipt Date: 20060324
  Transmission Date: 20061013
  Serious: Yes (Hospitalization)
  Sender: FDA-Public Use
  Company Number: BA-BRISTOL-MYERS SQUIBB COMPANY-13330758

PATIENT
  Age: 52 Year
  Sex: Male

DRUGS (3)
  1. GLUCOVANCE [Suspect]
     Indication: DIABETES MELLITUS NON-INSULIN-DEPENDENT
     Route: 048
     Dates: start: 20051018
  2. SIMCORA [Suspect]
     Route: 048
  3. ASPIRIN [Suspect]
     Route: 048

REACTIONS (1)
  - DERMATITIS ALLERGIC [None]
